FAERS Safety Report 7950336-2 (Version None)
Quarter: 2011Q4

REPORT INFORMATION
  Report Type: 
  Country: None (occurrence: None)
  Receive Date: 20111130
  Receipt Date: 20111122
  Transmission Date: 20120403
  Serious: Yes (Other)
  Sender: FDA-Public Use
  Company Number: DE-ELI_LILLY_AND_COMPANY-DE201111007001

PATIENT
  Sex: Female

DRUGS (3)
  1. VITAMIN D [Concomitant]
  2. CALCIUM [Concomitant]
  3. FORTEO [Suspect]
     Indication: OSTEOPOROSIS
     Dosage: UNK, QD
     Route: 058
     Dates: start: 20100812

REACTIONS (2)
  - MENISCUS OPERATION [None]
  - GAIT DISTURBANCE [None]
